FAERS Safety Report 12031355 (Version 1)
Quarter: 2016Q1

REPORT INFORMATION
  Report Type: Report from Study
  Country: US (occurrence: US)
  Receive Date: 20160207
  Receipt Date: 20160207
  Transmission Date: 20160526
  Serious: No
  Sender: FDA-Public Use
  Company Number: US-ABBVIE-15K-163-1507467-00

PATIENT
  Age: 82 Year
  Sex: Female

DRUGS (1)
  1. HUMIRA [Suspect]
     Active Substance: ADALIMUMAB
     Indication: RHEUMATOID ARTHRITIS
     Route: 058
     Dates: start: 20151113

REACTIONS (6)
  - Herpes zoster [Recovering/Resolving]
  - Feeling hot [Unknown]
  - White blood cells urine positive [Unknown]
  - Abdominal pain [Unknown]
  - Flank pain [Not Recovered/Not Resolved]
  - Red blood cells urine positive [Unknown]

NARRATIVE: CASE EVENT DATE: 201511
